FAERS Safety Report 8539033 (Version 3)
Quarter: 2012Q4

REPORT INFORMATION
  Report Type: Report from Study
  Country: AT (occurrence: AT)
  Receive Date: 20120501
  Receipt Date: 20121115
  Transmission Date: 20130627
  Serious: Yes (Hospitalization)
  Sender: FDA-Public Use
  Company Number: AT-JNJFOC-20120409423

PATIENT
  Sex: Female
  Weight: 62 kg

DRUGS (3)
  1. REMICADE [Suspect]
     Indication: COLITIS ULCERATIVE
     Route: 042
     Dates: start: 20100816
  2. MESAGRAN [Concomitant]
     Indication: COLITIS ULCERATIVE
     Route: 048
  3. IMUREK [Concomitant]

REACTIONS (1)
  - Cytomegalovirus colitis [Recovered/Resolved]
